APPROVED DRUG PRODUCT: MORPHINE SULFATE
Active Ingredient: MORPHINE SULFATE
Strength: 1MG/ML **Federal Register determination that product was not discontinued or withdrawn for safety or effectiveness reasons**
Dosage Form/Route: INJECTABLE;INJECTION
Application: N019916 | Product #001
Applicant: ICU MEDICAL INC
Approved: Oct 30, 1992 | RLD: Yes | RS: No | Type: DISCN